FAERS Safety Report 15704855 (Version 2)
Quarter: 2019Q1

REPORT INFORMATION
  Report Type: Spontaneous
  Country: US (occurrence: US)
  Receive Date: 20181210
  Receipt Date: 20190221
  Transmission Date: 20190417
  Serious: Yes (Other)
  Sender: FDA-Public Use
  Company Number: US-SA-2018SA332201

PATIENT
  Age: 57 Year
  Sex: Female
  Weight: 107 kg

DRUGS (8)
  1. MAXALT [Concomitant]
     Active Substance: RIZATRIPTAN BENZOATE
  2. COZAAR [Concomitant]
     Active Substance: LOSARTAN POTASSIUM
  3. VALACYCLOVIR [Concomitant]
     Active Substance: VALACYCLOVIR HYDROCHLORIDE
  4. PARAPLATIN [Concomitant]
     Active Substance: CARBOPLATIN
  5. PROZAC [Concomitant]
     Active Substance: FLUOXETINE HYDROCHLORIDE
  6. VITAMIN D [Concomitant]
     Active Substance: CHOLECALCIFEROL
  7. DOCETAXEL. [Suspect]
     Active Substance: DOCETAXEL
     Indication: BREAST CANCER FEMALE
     Dosage: 171.75 CYCLE 1-3; 168 MG CYCLE 4; 166 MG CYCLE 5, Q3W
     Route: 042
     Dates: start: 20140321, end: 20140321
  8. DOCETAXEL. [Suspect]
     Active Substance: DOCETAXEL
     Dosage: 171.75 CYCLE 1-3; 168 MG CYCLE 4; 166 MG CYCLE 5, Q3W
     Route: 042
     Dates: start: 20140611, end: 20140611

REACTIONS (1)
  - Alopecia [Recovering/Resolving]

NARRATIVE: CASE EVENT DATE: 201412
